FAERS Safety Report 5520513-9 (Version None)
Quarter: 2007Q4

REPORT INFORMATION
  Report Type: 
  Country: None (occurrence: None)
  Receive Date: 20071119
  Receipt Date: 20071109
  Transmission Date: 20080405
  Serious: Yes (Other)
  Sender: FDA-Public Use
  Company Number: JP-PFIZER INC-2007081729

PATIENT
  Sex: Male
  Weight: 58.7 kg

DRUGS (5)
  1. HYDROXYZINE HYDROCHLORIDE (IM) [Suspect]
     Indication: ANAESTHETIC PREMEDICATION
     Route: 030
     Dates: start: 20060628, end: 20060628
  2. ATROPINE [Concomitant]
     Indication: ANAESTHETIC PREMEDICATION
     Route: 030
  3. DORAL [Concomitant]
     Route: 048
  4. ADONA [Concomitant]
     Route: 042
  5. TRANSAMIN [Concomitant]
     Route: 042

REACTIONS (1)
  - INJECTION SITE NECROSIS [None]
